FAERS Safety Report 18579296 (Version 10)
Quarter: 2021Q1

REPORT INFORMATION
  Report Type: Spontaneous
  Country: JP (occurrence: JP)
  Receive Date: 20201204
  Receipt Date: 20210322
  Transmission Date: 20210419
  Serious: Yes (Hospitalization, Other)
  Sender: FDA-Public Use
  Company Number: JP-PFIZER INC-2020470264

PATIENT
  Age: 83 Year
  Sex: Female
  Weight: 42 kg

DRUGS (25)
  1. DONEPEZIL HCL [Suspect]
     Active Substance: DONEPEZIL HYDROCHLORIDE
     Indication: DEMENTIA
     Dosage: UNK
  2. IMIDAFENACIN [Suspect]
     Active Substance: IMIDAFENACIN
     Dosage: UNK
     Route: 065
  3. METOCLOPRAMIDE. [Suspect]
     Active Substance: METOCLOPRAMIDE
     Dosage: UNK
  4. MYONAL [EPERISONE HYDROCHLORIDE] [Suspect]
     Active Substance: EPERISONE HYDROCHLORIDE
     Indication: BACK PAIN
     Dosage: UNK
     Route: 048
  5. PREGABALIN. [Suspect]
     Active Substance: PREGABALIN
     Dosage: INCREASED
     Route: 065
  6. ELIQUIS [Suspect]
     Active Substance: APIXABAN
     Indication: ATRIAL FIBRILLATION
     Dosage: UNK
     Route: 065
  7. ENALAPRIL MALEATE. [Suspect]
     Active Substance: ENALAPRIL MALEATE
     Indication: HYPERTENSION
     Dosage: UNK
  8. TRAMADOL/ACETAMINOPHEN [Suspect]
     Active Substance: ACETAMINOPHEN\TRAMADOL
     Indication: BACK PAIN
     Dosage: UNK
  9. AMLODIPINE BESILATE [Suspect]
     Active Substance: AMLODIPINE BESYLATE
     Indication: HYPERTENSION
     Dosage: UNK
  10. KAKKONTO SISEI [Suspect]
     Active Substance: HERBALS
     Dosage: UNK
     Route: 048
  11. DEPAS [ETIZOLAM] [Suspect]
     Active Substance: ETIZOLAM
     Indication: INSOMNIA
     Dosage: UNK
     Route: 065
  12. POVIDONE?IODINE. [Suspect]
     Active Substance: POVIDONE-IODINE
     Dosage: UNK
  13. PREGABALIN. [Suspect]
     Active Substance: PREGABALIN
     Indication: NEURALGIA
     Dosage: UNK
     Route: 065
  14. CELECOXIB. [Suspect]
     Active Substance: CELECOXIB
     Indication: BACK PAIN
     Dosage: UNK
     Route: 048
  15. URAPIDIL [Suspect]
     Active Substance: URAPIDIL
     Indication: DYSURIA
     Dosage: UNK
     Route: 065
  16. EPERISONE [Suspect]
     Active Substance: EPERISONE
     Indication: BACK PAIN
     Dosage: UNK
  17. PL [Suspect]
     Active Substance: ACETAMINOPHEN\CAFFEINE\PROMETHAZINE\SALICYLAMIDE
     Dosage: UNK
     Route: 048
  18. OLOPATADINE HYDROCHLORIDE. [Suspect]
     Active Substance: OLOPATADINE HYDROCHLORIDE
     Indication: RHINITIS ALLERGIC
     Dosage: UNK
     Route: 065
  19. CLOTIAZEPAM [Suspect]
     Active Substance: CLOTIAZEPAM
     Dosage: UNK
  20. FUROSEMIDE. [Suspect]
     Active Substance: FUROSEMIDE
     Indication: HYPERTENSION
     Dosage: UNK
  21. YOKUKANSAN [Suspect]
     Active Substance: HERBALS
     Dosage: UNK
  22. LANSOPRAZOLE. [Suspect]
     Active Substance: LANSOPRAZOLE
     Indication: GASTROOESOPHAGEAL REFLUX DISEASE
     Dosage: UNK
     Route: 065
  23. MAGNESIUM OXIDE. [Suspect]
     Active Substance: MAGNESIUM OXIDE
     Indication: CONSTIPATION
     Dosage: UNK
     Route: 065
  24. RISEDRONIC ACID [Suspect]
     Active Substance: RISEDRONIC ACID
     Indication: OSTEOPOROSIS
     Dosage: UNK
  25. ETIZOLAM [Suspect]
     Active Substance: ETIZOLAM
     Dosage: UNK

REACTIONS (10)
  - Herpes zoster reactivation [Unknown]
  - Back pain [Recovering/Resolving]
  - Urinary retention [Recovering/Resolving]
  - Dizziness [Recovering/Resolving]
  - Nausea [Recovering/Resolving]
  - Vomiting [Recovering/Resolving]
  - Spinal compression fracture [Unknown]
  - Fall [Unknown]
  - Malaise [Recovering/Resolving]
  - Hypokalaemia [Recovering/Resolving]
